FAERS Safety Report 5066047-X (Version None)
Quarter: 2006Q3

REPORT INFORMATION
  Report Type: 
  Country: None (occurrence: None)
  Receive Date: 20060731
  Receipt Date: 20051025
  Transmission Date: 20061208
  Serious: No
  Sender: FDA-Public Use
  Company Number: US-AMGEN-US155561

PATIENT
  Age: 10 Year
  Sex: Female

DRUGS (5)
  1. KINERET [Suspect]
     Indication: JUVENILE ARTHRITIS
     Route: 065
  2. METHOTREXATE [Concomitant]
     Route: 065
  3. PREDNISONE [Concomitant]
     Route: 065
  4. CYCLOSPORINE [Concomitant]
  5. REMICADE [Concomitant]

REACTIONS (1)
  - INJECTION SITE PAIN [None]
